FAERS Safety Report 22390507 (Version 1)
Quarter: 2023Q2

REPORT INFORMATION
  Report Type: Spontaneous
  Country: US (occurrence: US)
  Receive Date: 20230531
  Receipt Date: 20230531
  Transmission Date: 20230722
  Serious: No
  Sender: FDA-Public Use
  Company Number: US-BAUSCHBL-2023BNL004575

PATIENT
  Sex: Female

DRUGS (1)
  1. ALAWAY PRESERVATIVE FREE [Suspect]
     Active Substance: KETOTIFEN FUMARATE
     Indication: Eye allergy
     Dosage: AS NEEDED
     Route: 047

REACTIONS (4)
  - Instillation site irritation [Unknown]
  - Expired product administered [Unknown]
  - Product expiration date issue [Unknown]
  - Poor quality product administered [Unknown]
